FAERS Safety Report 13100406 (Version 1)
Quarter: 2017Q1

REPORT INFORMATION
  Report Type: Spontaneous
  Country: US (occurrence: US)
  Receive Date: 20170109
  Receipt Date: 20170109
  Transmission Date: 20170428
  Serious: Yes (Disabling)
  Sender: FDA-Public Use
  Company Number: None

PATIENT
  Age: 49 Year
  Sex: Male
  Weight: 81.45 kg

DRUGS (5)
  1. DEPO-MEDROL [Suspect]
     Active Substance: METHYLPREDNISOLONE ACETATE
     Indication: INTERVERTEBRAL DISC PROTRUSION
     Route: 008
     Dates: start: 20140827
  2. SODIUM BICARBONATE. [Concomitant]
     Active Substance: SODIUM BICARBONATE
  3. STEROID INJECTION [Concomitant]
     Active Substance: UNSPECIFIED INGREDIENT
  4. CONTRAST [Concomitant]
     Active Substance: UNSPECIFIED INGREDIENT
  5. BUPIVICAINE [Concomitant]
     Active Substance: BUPIVACAINE

REACTIONS (3)
  - Spinal cord infarction [None]
  - Hypoaesthesia [None]
  - Paresis [None]

NARRATIVE: CASE EVENT DATE: 20140827
